FAERS Safety Report 10333186 (Version 1)
Quarter: 2014Q3

REPORT INFORMATION
  Report Type: Report from Study
  Country: BR (occurrence: BR)
  Receive Date: 20140722
  Receipt Date: 20140722
  Transmission Date: 20150326
  Serious: Yes (Hospitalization, Other)
  Sender: FDA-Public Use
  Company Number: PHHY2014BR089664

PATIENT
  Sex: Female

DRUGS (6)
  1. AMICACINA ^EUROFARMA^ [Suspect]
     Active Substance: AMIKACIN
     Dosage: UNK UKN, UNK
     Route: 042
  2. COLIMICIN [Suspect]
     Active Substance: COLISTIN SULFATE
     Dosage: UNK UKN, UNK
  3. GENTAMICIN [Suspect]
     Active Substance: GENTAMICIN
     Dosage: UNK UKN, UNK
     Route: 042
  4. ZOTEON [Suspect]
     Active Substance: TOBRAMYCIN
     Dosage: UNK UKN, UNK
  5. CENTRUM [Suspect]
     Active Substance: VITAMINS
     Dosage: UNK UKN, UNK
  6. TOBI [Suspect]
     Active Substance: TOBRAMYCIN
     Dosage: UNK UKN, UNK

REACTIONS (2)
  - Lung infection pseudomonal [Unknown]
  - Cystic fibrosis [Unknown]
